FAERS Safety Report 14574253 (Version 5)
Quarter: 2018Q2

REPORT INFORMATION
  Report Type: Spontaneous
  Country: US (occurrence: US)
  Receive Date: 20180226
  Receipt Date: 20180531
  Transmission Date: 20180711
  Serious: Yes (Other)
  Sender: FDA-Public Use
  Company Number: US-ACTELION-A-US2018-168275

PATIENT
  Age: 41 Year
  Sex: Male

DRUGS (1)
  1. VALCHLOR [Suspect]
     Active Substance: MECHLORETHAMINE
     Indication: MYCOSIS FUNGOIDES
     Dosage: UNK
     Route: 061
     Dates: start: 20180103

REACTIONS (7)
  - Discomfort [Unknown]
  - Dry skin [Unknown]
  - Depression [Unknown]
  - Drug dose omission [Unknown]
  - Immune thrombocytopenic purpura [Recovering/Resolving]
  - Skin irritation [Unknown]
  - Pruritus [Unknown]
